FAERS Safety Report 7001187-7 (Version None)
Quarter: 2010Q3

REPORT INFORMATION
  Report Type: 
  Country: None (occurrence: None)
  Receive Date: 20100920
  Receipt Date: 20100412
  Transmission Date: 20110219
  Serious: Yes (Other)
  Sender: FDA-Public Use
  Company Number: US-ASTRAZENECA-2006UW08122

PATIENT
  Age: 44 Year
  Sex: Male
  Weight: 97.5 kg

DRUGS (14)
  1. SEROQUEL [Suspect]
     Indication: DEPRESSION
     Route: 048
     Dates: start: 20000101, end: 20060801
  2. SEROQUEL [Suspect]
     Dosage: 50-300 MG
     Route: 048
     Dates: start: 20020222
  3. SEROQUEL [Suspect]
     Route: 048
     Dates: start: 20040401
  4. ZYPREXA [Concomitant]
     Dosage: 10-50 MG
     Dates: start: 20000103, end: 20020209
  5. TRAZODONE HCL [Concomitant]
     Dates: start: 20020222
  6. LUVOX [Concomitant]
     Dosage: 300-2800 MG
     Dates: start: 20020209
  7. SERZONE [Concomitant]
     Dosage: 100-300 MG
     Dates: start: 20020209
  8. PROZAC [Concomitant]
     Dosage: 20 MG, TWO AM
     Dates: start: 20000103
  9. LIBRIUM [Concomitant]
     Dosage: 10 MG,Q6HRS, Q4 HRS, PRN
     Dates: start: 20000103
  10. PREVACID [Concomitant]
     Dosage: 30 MG ONE IN THE A.M. AND 2 AT H.S
     Dates: start: 20020209
  11. LIPITOR [Concomitant]
     Dates: start: 20020209
  12. METOCLOPRAMIDE [Concomitant]
     Dates: start: 20020209
  13. AMARYL [Concomitant]
     Dates: start: 20020209
  14. THEO-DUR [Concomitant]
     Route: 048
     Dates: start: 19980101

REACTIONS (4)
  - DIABETES MELLITUS [None]
  - DIABETIC COMA [None]
  - DIABETIC KETOACIDOSIS [None]
  - TYPE 2 DIABETES MELLITUS [None]
